FAERS Safety Report 17157659 (Version 2)
Quarter: 2020Q1

REPORT INFORMATION
  Report Type: Report from Study
  Country: MX (occurrence: MX)
  Receive Date: 20191216
  Receipt Date: 20200113
  Transmission Date: 20200409
  Serious: No
  Sender: FDA-Public Use
  Company Number: NVSC2019MX070074

PATIENT
  Sex: Male
  Weight: 100 kg

DRUGS (4)
  1. GALVUS MET [Suspect]
     Active Substance: METFORMIN HYDROCHLORIDE\VILDAGLIPTIN
     Indication: DIABETES MELLITUS
     Dosage: 1 DF, BID, (50/850MG), IN MORNING AND AT NIGHT
     Route: 048
  2. GALVUS MET [Suspect]
     Active Substance: METFORMIN HYDROCHLORIDE\VILDAGLIPTIN
     Dosage: 1 DF, TID, (50/1000MG), IN MORNING, MIDDAY AND NIGHT
     Route: 048
  3. TELMISARTAN. [Concomitant]
     Active Substance: TELMISARTAN
     Indication: HYPERTENSION
     Dosage: 1 DF, QD, 3 YEARS AGO
     Route: 048
  4. GALVUS MET [Suspect]
     Active Substance: METFORMIN HYDROCHLORIDE\VILDAGLIPTIN
     Dosage: 1 DF, BID (50/1000MG), IN MORNING AND NIGHT
     Route: 048

REACTIONS (4)
  - Incorrect dosage administered [Unknown]
  - Inappropriate schedule of product administration [Unknown]
  - Drug ineffective [Recovered/Resolved]
  - Product prescribing error [Unknown]
